FAERS Safety Report 15934777 (Version 6)
Quarter: 2019Q3

REPORT INFORMATION
  Report Type: Report from Study
  Country: US (occurrence: US)
  Receive Date: 20190207
  Receipt Date: 20190911
  Transmission Date: 20191004
  Serious: Yes (Other)
  Sender: FDA-Public Use
  Company Number: US-ACTELION-A-US2016-130477

PATIENT
  Age: 73 Year
  Sex: Female

DRUGS (3)
  1. HYDROCODONE [Concomitant]
     Active Substance: HYDROCODONE
     Indication: BACK PAIN
  2. OPSUMIT [Suspect]
     Active Substance: MACITENTAN
     Indication: PULMONARY ARTERIAL HYPERTENSION
     Dosage: 10 MG, QD
     Route: 048
     Dates: start: 20131112
  3. OPSUMIT [Suspect]
     Active Substance: MACITENTAN
     Dosage: UNK
     Route: 048

REACTIONS (14)
  - Muscular weakness [Unknown]
  - Cardiac disorder [Unknown]
  - Amnesia [Unknown]
  - Stress [Unknown]
  - Constipation [Unknown]
  - Product dose omission [Unknown]
  - Spondylolysis [Unknown]
  - Pain [Unknown]
  - Nasopharyngitis [Not Recovered/Not Resolved]
  - Cough [Not Recovered/Not Resolved]
  - Sciatica [Unknown]
  - Seasonal allergy [Unknown]
  - Intervertebral disc protrusion [Unknown]
  - Back pain [Unknown]

NARRATIVE: CASE EVENT DATE: 201901
